FAERS Safety Report 6191497-8 (Version None)
Quarter: 2009Q2

REPORT INFORMATION
  Report Type: 
  Country: None (occurrence: None)
  Receive Date: 20090515
  Receipt Date: 20090511
  Transmission Date: 20091009
  Serious: Yes (Other)
  Sender: FDA-Public Use
  Company Number: FR-JNJFOC-20081202461

PATIENT
  Sex: Female
  Weight: 79 kg

DRUGS (5)
  1. RISPERDAL [Suspect]
     Indication: BIPOLAR DISORDER
     Route: 048
  2. PROZAC [Suspect]
     Indication: DRUG USE FOR UNKNOWN INDICATION
     Route: 065
  3. ABILIFY [Suspect]
     Indication: DRUG THERAPY
     Route: 065
  4. ANTIBIOTICS [Suspect]
     Indication: DRUG USE FOR UNKNOWN INDICATION
     Route: 042
  5. ACETAMINOPHEN [Suspect]
     Indication: HEADACHE
     Route: 042

REACTIONS (4)
  - BLOOD GLUCOSE FLUCTUATION [None]
  - DRUG EXPOSURE DURING PREGNANCY [None]
  - HAEMORRHAGE [None]
  - PLACENTAL DISORDER [None]
